FAERS Safety Report 10165735 (Version 1)
Quarter: 2014Q2

REPORT INFORMATION
  Report Type: Spontaneous
  Country: US (occurrence: US)
  Receive Date: 20140510
  Receipt Date: 20140510
  Transmission Date: 20141212
  Serious: No
  Sender: FDA-Public Use
  Company Number: US-BRISTOL-MYERS SQUIBB COMPANY-19919216

PATIENT
  Sex: Male

DRUGS (1)
  1. BYDUREON [Suspect]
     Dosage: 6 OR 8 DOSES
     Route: 058

REACTIONS (2)
  - Injection site swelling [Not Recovered/Not Resolved]
  - Injection site pruritus [Not Recovered/Not Resolved]
